FAERS Safety Report 6162517-1 (Version None)
Quarter: 2009Q2

REPORT INFORMATION
  Report Type: 
  Country: None (occurrence: None)
  Receive Date: 20090417
  Receipt Date: 20090402
  Transmission Date: 20091009
  Serious: Yes (Other)
  Sender: FDA-Public Use
  Company Number: DSA_33495_2009

PATIENT
  Age: 82 Year
  Sex: Female

DRUGS (2)
  1. TILDIEM (TILDIEM SLOW RELEASE-DILTIAZEM HYDROCHLORIDE) (NOT SPECIFIED) [Suspect]
     Indication: DRUG USE FOR UNKNOWN INDICATION
     Dosage: (DF)
  2. DILTIAZEM HYDROCHLORIDE [Suspect]
     Dosage: (DF)

REACTIONS (3)
  - DRUG EFFECT DECREASED [None]
  - HYPERTENSION [None]
  - PRODUCT MEASURED POTENCY ISSUE [None]
